FAERS Safety Report 25786125 (Version 1)
Quarter: 2025Q3

REPORT INFORMATION
  Report Type: Spontaneous
  Country: US (occurrence: US)
  Receive Date: 20250910
  Receipt Date: 20250910
  Transmission Date: 20251021
  Serious: Yes (Other)
  Sender: AMGEN
  Company Number: US-AMGEN-USASP2025176532

PATIENT
  Age: 65 Year
  Sex: Female

DRUGS (3)
  1. PREDNISONE [Suspect]
     Active Substance: PREDNISONE
     Indication: Mucous membrane pemphigoid
     Route: 065
  2. DAPSONE [Concomitant]
     Active Substance: DAPSONE
     Indication: Mucous membrane pemphigoid
  3. CLOBETASOL [Concomitant]
     Active Substance: CLOBETASOL
     Indication: Skin lesion
     Route: 065

REACTIONS (2)
  - Mantle cell lymphoma stage III [Recovering/Resolving]
  - Off label use [Unknown]
